FAERS Safety Report 24446698 (Version 1)
Quarter: 2024Q4

REPORT INFORMATION
  Report Type: Spontaneous
  Country: FR (occurrence: FR)
  Receive Date: 20241016
  Receipt Date: 20241016
  Transmission Date: 20250114
  Serious: Yes (Other)
  Sender: TEVA
  Company Number: None

PATIENT
  Age: 84 Year
  Sex: Female

DRUGS (3)
  1. PACLITAXEL [Suspect]
     Active Substance: PACLITAXEL
     Indication: Endometrial cancer
     Dosage: TIME INTERVAL: CYCLICAL
     Route: 042
     Dates: start: 20240616, end: 20240710
  2. CARBOPLATIN [Suspect]
     Active Substance: CARBOPLATIN
     Indication: Endometrial cancer
     Dosage: TIME INTERVAL: CYCLICAL
     Route: 042
     Dates: start: 20240616, end: 20240710
  3. JEMPERLI [Suspect]
     Active Substance: DOSTARLIMAB\DOSTARLIMAB-GXLY
     Indication: Endometrial cancer
     Dosage: TIME INTERVAL: CYCLICAL
     Route: 042
     Dates: start: 20240616

REACTIONS (2)
  - Asthenia [Recovering/Resolving]
  - Bicytopenia [Recovering/Resolving]

NARRATIVE: CASE EVENT DATE: 20240626
